FAERS Safety Report 24631038 (Version 2)
Quarter: 2025Q2

REPORT INFORMATION
  Report Type: Report from Study
  Country: US (occurrence: US)
  Receive Date: 20241118
  Receipt Date: 20250602
  Transmission Date: 20250716
  Serious: Yes (Other)
  Sender: TAKEDA
  Company Number: US-TAKEDA-2024TUS114270

PATIENT
  Age: 8 Year
  Sex: Male

DRUGS (3)
  1. ADVATE [Suspect]
     Active Substance: ANTIHEMOPHILIC FACTOR, HUMAN RECOMBINANT
     Indication: Factor VIII deficiency
  2. ADVATE [Suspect]
     Active Substance: ANTIHEMOPHILIC FACTOR, HUMAN RECOMBINANT
  3. ADVATE [Suspect]
     Active Substance: ANTIHEMOPHILIC FACTOR, HUMAN RECOMBINANT

REACTIONS (7)
  - Contusion [Unknown]
  - Haemorrhage [Recovered/Resolved]
  - Cerebrovascular accident [Recovering/Resolving]
  - Cerebral haemorrhage [Recovering/Resolving]
  - Road traffic accident [Unknown]
  - Pain [Unknown]
  - Head injury [Recovering/Resolving]

NARRATIVE: CASE EVENT DATE: 20250518
